FAERS Safety Report 24464941 (Version 1)
Quarter: 2024Q4

REPORT INFORMATION
  Report Type: Report from Study
  Country: US (occurrence: US)
  Receive Date: 20241018
  Receipt Date: 20241018
  Transmission Date: 20250114
  Serious: No
  Sender: ROCHE
  Company Number: US-ROCHE-3514511

PATIENT
  Age: 10 Year
  Sex: Male

DRUGS (6)
  1. XOLAIR [Suspect]
     Active Substance: OMALIZUMAB
     Indication: Idiopathic urticaria
     Route: 065
  2. XOLAIR [Suspect]
     Active Substance: OMALIZUMAB
     Indication: Angioedema
  3. CETIRIZINE HYDROCHLORIDE [Concomitant]
     Active Substance: CETIRIZINE HYDROCHLORIDE
  4. FEXOFENADINE [Concomitant]
     Active Substance: FEXOFENADINE HYDROCHLORIDE
  5. CROMOLYN [Concomitant]
     Active Substance: CROMOLYN
  6. FOCALIN XR [Concomitant]
     Active Substance: DEXMETHYLPHENIDATE HYDROCHLORIDE

REACTIONS (2)
  - Off label use [Unknown]
  - No adverse event [Unknown]
